FAERS Safety Report 4948790-3 (Version None)
Quarter: 2006Q1

REPORT INFORMATION
  Report Type: 
  Country: None (occurrence: None)
  Receive Date: 20060315
  Receipt Date: 20060303
  Transmission Date: 20060701
  Serious: Yes (Hospitalization, Other)
  Sender: FDA-Public Use
  Company Number: 2006US000206

PATIENT
  Age: 51 Year
  Sex: Male

DRUGS (7)
  1. AMBISOME [Suspect]
     Indication: FUNGAL INFECTION
     Dosage: 430 MG, UID/QD, IV NOS
     Route: 042
     Dates: start: 20060105, end: 20060117
  2. POSACONAZOLE() REGIMEN [Suspect]
     Indication: FUNGAL INFECTION
     Dosage: 200 MG, QID, ORAL
     Route: 048
     Dates: start: 20060117
  3. VALACYCLOVIR HCL [Concomitant]
  4. BACTRIM DS [Concomitant]
  5. RITONAVIR (RITONAVIR) [Concomitant]
  6. ALLOPURINOL [Concomitant]
  7. TRUVADA [Concomitant]

REACTIONS (1)
  - ELECTROCARDIOGRAM QT CORRECTED INTERVAL PROLONGED [None]
